FAERS Safety Report 20799248 (Version 1)
Quarter: 2022Q2

REPORT INFORMATION
  Report Type: Spontaneous
  Country: BR (occurrence: BR)
  Receive Date: 20220508
  Receipt Date: 20220508
  Transmission Date: 20220721
  Serious: Yes (Other)
  Sender: FDA-Public Use
  Company Number: BR-ORGANON-O2205BRA000248

PATIENT
  Sex: Female

DRUGS (1)
  1. VYTORIN [Suspect]
     Active Substance: EZETIMIBE\SIMVASTATIN
     Indication: Blood cholesterol increased
     Dosage: 10/20 MILLIGRAM 3 DAYS A WEEK: THURSDAY, FRIDAY AND SATURDAY
     Route: 048

REACTIONS (2)
  - Spinal fracture [Unknown]
  - Intentional product misuse [Unknown]
